FAERS Safety Report 20930772 (Version 2)
Quarter: 2022Q2

REPORT INFORMATION
  Report Type: Report from Study
  Country: GB (occurrence: GB)
  Receive Date: 20220608
  Receipt Date: 20220621
  Transmission Date: 20220721
  Serious: Yes (Other)
  Sender: FDA-Public Use
  Company Number: GB-NOVARTISPH-NVSC2022GB130431

PATIENT
  Sex: Male

DRUGS (1)
  1. EXTAVIA [Suspect]
     Active Substance: INTERFERON BETA-1B
     Indication: Multiple sclerosis
     Dosage: 1 ML (ON ALTERNATE DAYS AS DIRECTED)
     Route: 058

REACTIONS (3)
  - Cerebrovascular accident [Unknown]
  - Condition aggravated [Unknown]
  - General physical health deterioration [Unknown]
